FAERS Safety Report 9429939 (Version 1)
Quarter: 2013Q3

REPORT INFORMATION
  Report Type: Report from Study
  Country: US (occurrence: US)
  Receive Date: 20130730
  Receipt Date: 20130730
  Transmission Date: 20140515
  Serious: No
  Sender: FDA-Public Use
  Company Number: US-ABBOTT-13P-163-1077192-00

PATIENT
  Sex: Male
  Weight: 102.15 kg

DRUGS (5)
  1. NIASPAN (COATED) [Suspect]
     Indication: HIGH DENSITY LIPOPROTEIN DECREASED
     Dosage: CUTTING PILL IN HALF TO TAKE THE HALF IN AM + HALF IN THE EVENING
     Dates: start: 20130408
  2. NIASPAN (COATED) [Suspect]
     Indication: BLOOD TRIGLYCERIDES INCREASED
  3. WELCHOL [Concomitant]
     Indication: PRODUCT USED FOR UNKNOWN INDICATION
  4. LIPITOR [Concomitant]
     Indication: PRODUCT USED FOR UNKNOWN INDICATION
  5. ASA [Concomitant]
     Indication: PRODUCT USED FOR UNKNOWN INDICATION

REACTIONS (5)
  - Drug prescribing error [Unknown]
  - Flushing [Recovered/Resolved]
  - Insomnia [Recovered/Resolved]
  - Erythema [Unknown]
  - Wrong technique in drug usage process [Unknown]
